FAERS Safety Report 25914115 (Version 1)
Quarter: 2025Q4

REPORT INFORMATION
  Report Type: Spontaneous
  Country: CN (occurrence: CN)
  Receive Date: 20251013
  Receipt Date: 20251013
  Transmission Date: 20260118
  Serious: Yes (Hospitalization)
  Sender: PFIZER
  Company Number: CN-PFIZER INC-PV202500120386

PATIENT
  Age: 63 Year
  Sex: Male

DRUGS (2)
  1. ZYVOX [Suspect]
     Active Substance: LINEZOLID
     Indication: Skin ulcer
     Dosage: 0.6 G, 2X/DAY
     Route: 048
     Dates: start: 20250816, end: 20250828
  2. ZYVOX [Suspect]
     Active Substance: LINEZOLID
     Dosage: 0.3 G, 2X/DAY
     Route: 048
     Dates: start: 20250829

REACTIONS (3)
  - Drug level increased [Unknown]
  - Platelet count decreased [Recovered/Resolved]
  - Haemoglobin decreased [Recovered/Resolved]

NARRATIVE: CASE EVENT DATE: 20250828
